FAERS Safety Report 19720975 (Version 1)
Quarter: 2021Q3

REPORT INFORMATION
  Report Type: Spontaneous
  Country: BE (occurrence: BE)
  Receive Date: 20210819
  Receipt Date: 20210819
  Transmission Date: 20211014
  Serious: Yes (Other)
  Sender: FDA-Public Use
  Company Number: BE-MYLANLABS-2021M1051745

PATIENT
  Age: 4 Year
  Sex: Male

DRUGS (2)
  1. FLUTICASONE. [Suspect]
     Active Substance: FLUTICASONE
     Indication: ASTHMA
     Dosage: 250 MICROGRAM, BID
     Route: 055
  2. HYDROCORTISONE. [Suspect]
     Active Substance: HYDROCORTISONE
     Indication: ASTHMA
     Dosage: 10 MG/M2 (IN 3 DOSES)

REACTIONS (8)
  - Altered state of consciousness [Unknown]
  - Depressed level of consciousness [Unknown]
  - Infection [Unknown]
  - Hypothalamic pituitary adrenal axis suppression [Unknown]
  - Adrenal insufficiency [Unknown]
  - Ketonuria [Unknown]
  - Scarlet fever [Unknown]
  - Hypoglycaemia [Unknown]
